FAERS Safety Report 9883330 (Version 1)
Quarter: 2014Q1

REPORT INFORMATION
  Report Type: Spontaneous
  Country: US (occurrence: US)
  Receive Date: 20140210
  Receipt Date: 20140210
  Transmission Date: 20141002
  Serious: No
  Sender: FDA-Public Use
  Company Number: US-US-EMD SERONO, INC.-7266740

PATIENT
  Sex: Female

DRUGS (1)
  1. CETROTIDE (CETRORELIX ACETATE FOR INJECTION) [Suspect]
     Indication: IN VITRO FERTILISATION

REACTIONS (1)
  - Premature ovulation [Unknown]
